FAERS Safety Report 10301245 (Version 1)
Quarter: 2014Q3

REPORT INFORMATION
  Report Type: Spontaneous
  Country: US (occurrence: None)
  Receive Date: 20140709
  Receipt Date: 20140709
  Transmission Date: 20150326
  Serious: Yes (Other)
  Sender: FDA-Public Use
  Company Number: None

PATIENT
  Age: 70 Year
  Sex: Female
  Weight: 68.49 kg

DRUGS (11)
  1. PRAVASTATIN [Concomitant]
     Active Substance: PRAVASTATIN\PRAVASTATIN SODIUM
  2. ESTROPIPATE. [Concomitant]
     Active Substance: ESTROPIPATE
  3. STOOL SOFTNER [Concomitant]
  4. FISH OIL [Concomitant]
     Active Substance: FISH OIL
  5. ALLERGY RELIEF PILL [Concomitant]
  6. PRADAXA [Suspect]
     Active Substance: DABIGATRAN ETEXILATE MESYLATE
     Indication: INTRACARDIAC THROMBUS
     Route: 048
     Dates: start: 20140515, end: 20140612
  7. LISINOPRIL. [Concomitant]
     Active Substance: LISINOPRIL
  8. BEE POLLEN PILLS [Concomitant]
  9. PROSPRALOL [Concomitant]
  10. FLUOCIMONILE CREAM [Concomitant]
  11. MULTIVITAMIN [Concomitant]
     Active Substance: VITAMINS

REACTIONS (2)
  - Rash [None]
  - Pruritus [None]

NARRATIVE: CASE EVENT DATE: 20140606
